FAERS Safety Report 4447842-4 (Version None)
Quarter: 2004Q3

REPORT INFORMATION
  Report Type: 
  Country: None (occurrence: None)
  Receive Date: 20040819
  Receipt Date: 20031120
  Transmission Date: 20050211
  Serious: Yes (Life-Threatening, Hospitalization, Other)
  Sender: FDA-Public Use
  Company Number: PHEH2003US10745

PATIENT
  Age: 52 Year
  Sex: Male
  Weight: 93 kg

DRUGS (9)
  1. LOTENSIN [Suspect]
     Indication: HYPERTENSION
     Dosage: 10 MG, QD, ORAL
     Route: 048
  2. GLUCOTROL XL [Concomitant]
  3. METFORMIN HCL [Concomitant]
  4. ISOSORBIDE (ISOSORBIDE) [Concomitant]
  5. COREG [Concomitant]
  6. FUROSEMIDE [Concomitant]
  7. ZAROXOLYN [Concomitant]
  8. ALBUTEROL [Concomitant]
  9. POTASSIUM (POTASSIUM) [Concomitant]

REACTIONS (1)
  - ANGIONEUROTIC OEDEMA [None]
